FAERS Safety Report 11500502 (Version 1)
Quarter: 2015Q3

REPORT INFORMATION
  Report Type: Spontaneous
  Country: US (occurrence: None)
  Receive Date: 20150910
  Receipt Date: 20150910
  Transmission Date: 20151125
  Serious: No
  Sender: FDA-Public Use
  Company Number: 2014-PEL-000479

PATIENT
  Age: 11 Year
  Sex: Male
  Weight: 38 kg

DRUGS (5)
  1. ISOFLURANE, USP (HUMAN) (ISOFLURANE) INJECTION, 100ML [Suspect]
     Active Substance: ISOFLURANE
     Indication: MAINTENANCE OF ANAESTHESIA
     Route: 055
  2. ATRACURIUM (ATRACURIUM) [Concomitant]
     Active Substance: ATRACURIUM
  3. THIOPENTAL SODIUM (THIOPENTAL SODIUM) [Concomitant]
  4. NITROUS OXIDE (NITROUS OXIDE) [Concomitant]
     Active Substance: NITROUS OXIDE
  5. OXYGEN (OXYGEN) [Concomitant]
     Active Substance: OXYGEN

REACTIONS (5)
  - Tachycardia [None]
  - Body temperature increased [None]
  - Blood creatine phosphokinase increased [None]
  - Procedural complication [None]
  - Muscle rigidity [None]
